FAERS Safety Report 7487514-5 (Version None)
Quarter: 2011Q2

REPORT INFORMATION
  Report Type: 
  Country: None (occurrence: None)
  Receive Date: 20110510
  Receipt Date: 20110425
  Transmission Date: 20111010
  Serious: Yes (Other)
  Sender: FDA-Public Use
  Company Number: AUR-APL-2011-01495

PATIENT
  Age: 74 Year
  Sex: Male

DRUGS (4)
  1. LISINOPRIL [Concomitant]
  2. SIMVASTATIN [Concomitant]
  3. METFORMIN HCL [Suspect]
     Dosage: 1G-TWICE DAILY
  4. ASPIRIN [Concomitant]

REACTIONS (2)
  - PARAESTHESIA [None]
  - HYPOAESTHESIA [None]
